FAERS Safety Report 9413816 (Version 1)
Quarter: 2013Q3

REPORT INFORMATION
  Report Type: Spontaneous
  Country: AT (occurrence: None)
  Receive Date: 20130719
  Receipt Date: 20130719
  Transmission Date: 20140515
  Serious: Yes (Other)
  Sender: FDA-Public Use
  Company Number: AT-012304

PATIENT
  Age: 84 Year
  Sex: Male

DRUGS (4)
  1. FIRMAGON /01764801/ [Suspect]
     Indication: PROSTATE CANCER
     Route: 058
     Dates: start: 201302, end: 201306
  2. CONCOR [Concomitant]
  3. ZANIDIP [Concomitant]
  4. TORASEMIDE [Concomitant]

REACTIONS (1)
  - Rash generalised [None]
